FAERS Safety Report 6349349-6 (Version None)
Quarter: 2009Q3

REPORT INFORMATION
  Report Type: 
  Country: None (occurrence: None)
  Receive Date: 20090911
  Receipt Date: 20090904
  Transmission Date: 20100115
  Serious: Yes (Other)
  Sender: FDA-Public Use
  Company Number: FR-JNJFOC-20090201784

PATIENT
  Sex: Female
  Weight: 56.5 kg

DRUGS (5)
  1. EPITOMAX [Suspect]
     Indication: EPILEPSY
     Route: 048
  2. XANAX [Concomitant]
  3. CYSTINE B6 [Concomitant]
     Dosage: SINCE ABOUT 20 YEARS
  4. URBANYL [Concomitant]
  5. NORDETTE-21 [Concomitant]
     Indication: CONTRACEPTION
     Dosage: SINCE ABOUT 20 YEARS

REACTIONS (6)
  - AGEUSIA [None]
  - ALOPECIA [None]
  - ONYCHOCLASIS [None]
  - ONYCHOMADESIS [None]
  - SERUM FERRITIN INCREASED [None]
  - WEIGHT DECREASED [None]
